FAERS Safety Report 6105726-X (Version None)
Quarter: 2009Q1

REPORT INFORMATION
  Report Type: 
  Country: None (occurrence: None)
  Receive Date: 20090306
  Receipt Date: 20090226
  Transmission Date: 20090719
  Serious: Yes (Hospitalization)
  Sender: FDA-Public Use
  Company Number: US-ABBOTT-09P-163-0559318-00

PATIENT
  Sex: Male

DRUGS (4)
  1. HUMIRA [Suspect]
     Indication: PSORIASIS
     Route: 058
     Dates: start: 20070112, end: 20070201
  2. HUMIRA [Suspect]
     Route: 058
     Dates: start: 20070101, end: 20071201
  3. UNKNOWN OTHER MEDICATIONS [Concomitant]
     Indication: DRUG USE FOR UNKNOWN INDICATION
  4. REMICADE [Concomitant]
     Indication: DRUG USE FOR UNKNOWN INDICATION
     Dates: start: 20080701

REACTIONS (6)
  - DIARRHOEA [None]
  - GALLBLADDER DISORDER [None]
  - GASTROINTESTINAL INFECTION [None]
  - INFLUENZA [None]
  - PANCREATITIS [None]
  - VOMITING [None]
